FAERS Safety Report 16688731 (Version 1)
Quarter: 2019Q3

REPORT INFORMATION
  Report Type: Spontaneous
  Country: US (occurrence: US)
  Receive Date: 20190809
  Receipt Date: 20190809
  Transmission Date: 20191004
  Serious: No
  Sender: FDA-Public Use
  Company Number: US-PURDUE-USA-2019-0147337

PATIENT
  Sex: Female
  Weight: 90.7 kg

DRUGS (2)
  1. BUPRENORPHINE TRANSDERMAL PATCH [Suspect]
     Active Substance: BUPRENORPHINE
     Dosage: 20 MCG/HR, WEEKLY
     Route: 062
  2. BUPRENORPHINE TRANSDERMAL PATCH [Suspect]
     Active Substance: BUPRENORPHINE
     Indication: PAIN
     Dosage: 15 MCG/HR, WEEKLY
     Route: 062

REACTIONS (7)
  - Scar [Unknown]
  - Dry skin [Unknown]
  - Application site irritation [Not Recovered/Not Resolved]
  - Hair texture abnormal [Unknown]
  - Application site rash [Not Recovered/Not Resolved]
  - Blister [Not Recovered/Not Resolved]
  - Trichorrhexis [Unknown]
